FAERS Safety Report 13066518 (Version 1)
Quarter: 2016Q4

REPORT INFORMATION
  Report Type: Spontaneous
  Country: AU (occurrence: AU)
  Receive Date: 20161227
  Receipt Date: 20161227
  Transmission Date: 20170207
  Serious: Yes (Other)
  Sender: FDA-Public Use
  Company Number: AU-PFIZER INC-2016531109

PATIENT
  Age: 70 Year
  Sex: Male

DRUGS (9)
  1. METHOTREXATE. [Suspect]
     Active Substance: METHOTREXATE
     Indication: RHEUMATOID ARTHRITIS
     Dosage: 15 MG, WEEKLY, IN THREE ORAL DIVIDED DOSES OVER  24 HOURS
     Route: 048
  2. CIMETIDINE [Interacting]
     Active Substance: CIMETIDINE
     Dosage: 800 MG, DAILY
  3. NAPROXEN. [Interacting]
     Active Substance: NAPROXEN
     Dosage: 1000 MG, DAILY
  4. PREDNISOLONE. [Interacting]
     Active Substance: PREDNISOLONE
     Dosage: UNK, FOR 12 MONTHS
  5. METHOTREXATE. [Interacting]
     Active Substance: METHOTREXATE
     Dosage: 7.5 MG, WEEKLY, RESUMED MTX
     Route: 048
  6. NAPROXEN. [Interacting]
     Active Substance: NAPROXEN
     Dosage: UNK, FOR 12 MONTHS
  7. CIMETIDINE [Interacting]
     Active Substance: CIMETIDINE
     Dosage: UNK, FOR 12 MONTHS
  8. METHOTREXATE. [Interacting]
     Active Substance: METHOTREXATE
     Dosage: 10 MG, WEEKLY, FOR 12 MONTHS
     Route: 048
  9. PREDNISOLONE. [Interacting]
     Active Substance: PREDNISOLONE
     Dosage: 3 MG, DAILY

REACTIONS (2)
  - Pancytopenia [Recovered/Resolved]
  - Drug interaction [Recovered/Resolved]
